FAERS Safety Report 9657356 (Version 1)
Quarter: 2013Q4

REPORT INFORMATION
  Report Type: Report from Study
  Country: AU (occurrence: AU)
  Receive Date: 20131030
  Receipt Date: 20131030
  Transmission Date: 20140711
  Serious: Yes (Hospitalization)
  Sender: FDA-Public Use
  Company Number: AU-GLAXOSMITHKLINE-B0935992A

PATIENT
  Age: 52 Year
  Sex: Male
  Weight: 100 kg

DRUGS (3)
  1. DABRAFENIB [Suspect]
     Indication: METASTATIC MALIGNANT MELANOMA
     Route: 048
     Dates: start: 20130926
  2. TRAMETINIB [Suspect]
     Indication: METASTATIC MALIGNANT MELANOMA
     Route: 048
     Dates: start: 20130926
  3. OXYCONTIN [Concomitant]
     Indication: PAIN
     Route: 048
     Dates: start: 201308

REACTIONS (1)
  - Pyrexia [Recovering/Resolving]
